FAERS Safety Report 4582868-1 (Version None)
Quarter: 2005Q1

REPORT INFORMATION
  Report Type: 
  Country: None (occurrence: None)
  Receive Date: 20050215
  Receipt Date: 20030123
  Transmission Date: 20050727
  Serious: Yes (Hospitalization, Other)
  Sender: FDA-Public Use
  Company Number: US-AMGEN-US046732

PATIENT
  Age: 62 Year
  Sex: Female

DRUGS (7)
  1. ETANERCEPT [Suspect]
     Indication: WEGENER'S GRANULOMATOSIS
     Route: 058
     Dates: end: 20020101
  2. CYCLOPHOSPHAMIDE [Suspect]
  3. PREDNISONE [Concomitant]
  4. CALCIUM WITH VITAMIN D [Concomitant]
  5. DARVOCET-N 100 [Concomitant]
  6. MEPRON [Concomitant]
  7. FERROUS SULFATE TAB [Concomitant]

REACTIONS (3)
  - ANAEMIA [None]
  - COLON CANCER [None]
  - HAEMOGLOBIN DECREASED [None]
